FAERS Safety Report 10055241 (Version 1)
Quarter: 2014Q2

REPORT INFORMATION
  Report Type: Spontaneous
  Country: US (occurrence: US)
  Receive Date: 20140403
  Receipt Date: 20140403
  Transmission Date: 20141212
  Serious: Yes (Hospitalization, Other)
  Sender: FDA-Public Use
  Company Number: GXBR2014US000986

PATIENT
  Sex: Female

DRUGS (8)
  1. TRIAMTERENE/HCTZ TABLETS USP [Suspect]
     Indication: HYPERTENSION
     Dosage: UNK DF, UNK
     Route: 048
  2. AMLODIPINE [Suspect]
     Indication: HYPERTENSION
     Dosage: 5 MG, UNK
     Route: 048
  3. MORPHINE SULFATE [Suspect]
     Indication: BACK PAIN
     Dosage: 30 MG, 6QD
     Route: 048
  4. MORPHINE SULFATE [Suspect]
     Dosage: 60 MG, TID
     Route: 048
  5. ASPIRIN [Concomitant]
     Dosage: UNK MG, UNK
  6. CELEXA [Concomitant]
     Dosage: UNK MG, UNK
  7. SELMA [Concomitant]
     Dosage: UNK DF, UNK
  8. FIORICET [Concomitant]
     Indication: MIGRAINE
     Dosage: UNK DF, UNK

REACTIONS (2)
  - Cerebrovascular accident [Unknown]
  - Blood pressure increased [Unknown]
